FAERS Safety Report 4389959-9 (Version None)
Quarter: 2004Q2

REPORT INFORMATION
  Report Type: 
  Country: None (occurrence: None)
  Receive Date: 20040630
  Receipt Date: 20040614
  Transmission Date: 20050107
  Serious: Yes (Life-Threatening)
  Sender: FDA-Public Use
  Company Number: 2004SE03211

PATIENT
  Age: 77 Year
  Sex: Male
  Weight: 82 kg

DRUGS (6)
  1. ROSUVASTATIN [Suspect]
     Indication: CARDIAC FAILURE CONGESTIVE
     Dosage: 10 MG DAILY PO
     Route: 048
     Dates: start: 20021217
  2. ENALAPRIL MALEATE [Suspect]
     Dosage: 20 MG DAILY PO
     Route: 048
     Dates: start: 20020401
  3. LASIX [Suspect]
     Dosage: 25 MG DAILY PO
     Route: 048
     Dates: start: 20020401
  4. LANOXIN [Suspect]
     Dosage: 0.25 MG DAILY PO
     Route: 048
     Dates: start: 20020401
  5. ALLOPURINOL [Suspect]
     Dosage: 150 MG DAILY PO
     Route: 048
     Dates: start: 20031201
  6. . [Concomitant]

REACTIONS (1)
  - PANCYTOPENIA [None]
